FAERS Safety Report 23293791 (Version 1)
Quarter: 2023Q4

REPORT INFORMATION
  Report Type: Report from Study
  Country: US (occurrence: US)
  Receive Date: 20231213
  Receipt Date: 20231213
  Transmission Date: 20240109
  Serious: Yes (Hospitalization)
  Sender: FDA-Public Use
  Company Number: US-ABBVIE-5535754

PATIENT
  Age: 48 Year
  Sex: Female

DRUGS (19)
  1. VENCLEXTA [Suspect]
     Active Substance: VENETOCLAX
     Indication: Acute myeloid leukaemia
     Dosage: LAST ADMIN DATE 2023
     Route: 048
     Dates: start: 20230930
  2. VENCLEXTA [Suspect]
     Active Substance: VENETOCLAX
     Indication: Acute myeloid leukaemia
     Dosage: TAKE 1 TABLETS (100 MG) BY MOUTH ONCE DAILY WITH FOOD X 7 DAYS. START 12/8
     Route: 048
     Dates: start: 20231027
  3. PROCHLORPERAZINE MALEATE [Concomitant]
     Active Substance: PROCHLORPERAZINE MALEATE
     Indication: Nausea
     Dosage: TIME INTERVAL: AS NECESSARY: TAKE 1 TABLET ORALLY EVERY 4-6 HOURS AS NEEDED
     Route: 048
  4. SODIUM BICARBONATE [Concomitant]
     Active Substance: SODIUM BICARBONATE
     Indication: Product used for unknown indication
     Dosage: TIME INTERVAL: 0.33333333 DAYS: TAKE 2 TABLETS BY MOUTH THREE TIMES DAILY.
     Route: 048
  5. TRAMADOL [Concomitant]
     Active Substance: TRAMADOL\TRAMADOL HYDROCHLORIDE
     Indication: Pain
     Dosage: TIME INTERVAL: AS NECESSARY: TAKE 1-2 TABLETS EVERY 4-6 HOURS AS NEEDED FOR MODERATE PAIN- NOT TO...
     Route: 048
  6. URSODIOL [Concomitant]
     Active Substance: URSODIOL
     Indication: Prophylaxis
     Dosage: TAKE 1 CAPSULE BY MOUTH TWICE A DAY
     Route: 048
  7. FILGRASTIM [Concomitant]
     Active Substance: FILGRASTIM
     Indication: Product used for unknown indication
     Dates: start: 20230930
  8. IDARUBICIN [Concomitant]
     Active Substance: IDARUBICIN
     Indication: Product used for unknown indication
     Dates: start: 20230930
  9. FLUDARABINE [Concomitant]
     Active Substance: FLUDARABINE PHOSPHATE
     Indication: Product used for unknown indication
     Dates: start: 20230930
  10. CYTARABINE [Concomitant]
     Active Substance: CYTARABINE
     Indication: Product used for unknown indication
     Dosage: HIGH DOSE
     Dates: start: 20230930
  11. ACYCLOVIR [Concomitant]
     Active Substance: ACYCLOVIR
     Indication: Product used for unknown indication
     Dosage: TAKE ONE TABLET BY MOUTH TWICE DAILY.
     Route: 048
  12. AMLODIPINE [Concomitant]
     Active Substance: AMLODIPINE BESYLATE
     Indication: Product used for unknown indication
     Dosage: TAKE ONE TABLET BY MOUTH DAILY.
     Route: 048
  13. FAMOTIDINE [Concomitant]
     Active Substance: FAMOTIDINE
     Indication: Product used for unknown indication
     Dosage: TAKE ONE TABLET BY MOUTH TWICE DAILY
     Route: 048
  14. LEVOFLOXACIN [Concomitant]
     Active Substance: LEVOFLOXACIN
     Indication: Product used for unknown indication
     Dosage: TAKE ONE TABLET ONCE DAILY. DO NOT TAKE WITHIN 2 HOURS OF MAGNESIUM, CALCIUM, ZINC,?OR ANTACIDS. ...
  15. LIDOCAINE\PRILOCAINE [Concomitant]
     Active Substance: LIDOCAINE\PRILOCAINE
     Indication: Product used for unknown indication
     Dosage: 2.5 %-2.5 % , APPLY OVER PORT SITE BEFORE ACCESS.
     Route: 061
  16. ONDANSETRON HYDROCHLORIDE [Concomitant]
     Active Substance: ONDANSETRON HYDROCHLORIDE
     Indication: Nausea
     Dosage: TAKE ONE TABLET BY MOUTH EVERY 8 HOURS AS NEEDED FOR NAUSEA
     Route: 048
  17. OXYCODONE [Concomitant]
     Active Substance: OXYCODONE
     Indication: Pain
     Dosage: PT NOT TAKING. TAKE 1 TABLET BY MOUTH EVERY 6 HOURS AS NEEDED FOR SEVERE PAIN
     Route: 048
  18. POSACONAZOLE [Concomitant]
     Active Substance: POSACONAZOLE
     Indication: Antifungal prophylaxis
     Dosage: TAKE 3 TABLETS AT THE SAME TIME BY MOUTH DAILY.  TABLET, DELAYED RELEASE
     Route: 048
     Dates: start: 20231117
  19. POTASSIUM CHLORIDE [Concomitant]
     Active Substance: POTASSIUM CHLORIDE
     Indication: Product used for unknown indication
     Dosage: TAKE TWO TABLETS BY MOUTH TWICE DAILY, TABLET, EXTENDED RELEASE
     Route: 048

REACTIONS (4)
  - Stomatococcus test positive [Unknown]
  - Off label use [Unknown]
  - Fatigue [Unknown]
  - Febrile neutropenia [Unknown]

NARRATIVE: CASE EVENT DATE: 20231121
